FAERS Safety Report 6835382-4 (Version None)
Quarter: 2010Q3

REPORT INFORMATION
  Report Type: 
  Country: None (occurrence: None)
  Receive Date: 20100708
  Receipt Date: 20100628
  Transmission Date: 20110219
  Serious: Yes (Hospitalization)
  Sender: FDA-Public Use
  Company Number: IDA-00373

PATIENT

DRUGS (2)
  1. PROPRANOLOL [Suspect]
     Indication: TREMOR
     Dosage: DAILY DOSE: UNK, ROUTE OF ADMINISTRATION: UNK; FORMULATION: UNKOWN
  2. METOPROLOL SUCCINATE [Suspect]
     Indication: CARDIAC FAILURE CONGESTIVE
     Dosage: DAILY

REACTIONS (2)
  - BRADYCARDIA [None]
  - DRUG INTERACTION [None]
